FAERS Safety Report 19213668 (Version 4)
Quarter: 2021Q3

REPORT INFORMATION
  Report Type: Report from Study
  Country: US (occurrence: US)
  Receive Date: 20210504
  Receipt Date: 20210701
  Transmission Date: 20211014
  Serious: Yes (Hospitalization)
  Sender: FDA-Public Use
  Company Number: US-SEATTLE GENETICS-2021SGN02537

PATIENT
  Sex: Female

DRUGS (2)
  1. TUCATINIB [Suspect]
     Active Substance: TUCATINIB
     Indication: BREAST CANCER FEMALE
  2. TUCATINIB [Suspect]
     Active Substance: TUCATINIB
     Dosage: UNK

REACTIONS (7)
  - Blood glucose increased [Unknown]
  - Dyspnoea [Unknown]
  - Staphylococcal infection [Unknown]
  - Unevaluable event [Unknown]
  - Pulmonary embolism [Unknown]
  - Inappropriate schedule of product administration [Unknown]
  - Diarrhoea [Unknown]
